FAERS Safety Report 7612145-3 (Version None)
Quarter: 2011Q3

REPORT INFORMATION
  Report Type: 
  Country: None (occurrence: None)
  Receive Date: 20110715
  Receipt Date: 20110708
  Transmission Date: 20111222
  Serious: Yes (Other)
  Sender: FDA-Public Use
  Company Number: US-ABBOTT-11P-163-0838019-00

PATIENT
  Sex: Female
  Weight: 59.02 kg

DRUGS (10)
  1. SPIRIVA [Concomitant]
     Indication: LUNG DISORDER
  2. OXYCODONE HCL [Concomitant]
     Indication: PAIN
  3. ALPRAZOLAM [Concomitant]
     Indication: PANIC ATTACK
  4. ALBUTEROL SULFATE AUTOHALER [Concomitant]
     Indication: LUNG DISORDER
  5. XOPENEX [Concomitant]
     Indication: LUNG DISORDER
  6. METHADONE HCL [Concomitant]
     Indication: PAIN
  7. ADVAIR DISKUS 100/50 [Concomitant]
     Indication: LUNG DISORDER
  8. HUMIRA [Suspect]
     Indication: RHEUMATOID ARTHRITIS
     Dates: start: 20101001
  9. ALBUTEROL IN NEBULIZER [Concomitant]
     Indication: LUNG DISORDER
  10. HUMIRA [Suspect]
     Indication: RHEUMATOID ARTHRITIS
     Dates: start: 20050101, end: 20101001

REACTIONS (17)
  - TUNNEL VISION [None]
  - HYPOAESTHESIA [None]
  - HYPERTENSION [None]
  - RHINORRHOEA [None]
  - FEELING HOT [None]
  - RESPIRATORY TRACT INFECTION [None]
  - CONVULSION [None]
  - EUPHORIC MOOD [None]
  - PRESYNCOPE [None]
  - OROPHARYNGEAL PAIN [None]
  - COUGH [None]
  - MOVEMENT DISORDER [None]
  - PULMONARY CONGESTION [None]
  - MUSCULAR WEAKNESS [None]
  - THIRST [None]
  - NASAL CONGESTION [None]
  - FEELING ABNORMAL [None]
